FAERS Safety Report 10430299 (Version 1)
Quarter: 2014Q3

REPORT INFORMATION
  Report Type: Report from Study
  Country: US (occurrence: US)
  Receive Date: 20140904
  Receipt Date: 20140904
  Transmission Date: 20150326
  Serious: Yes (Death, Other)
  Sender: FDA-Public Use
  Company Number: US-ASTELLAS-2014US011757

PATIENT
  Sex: Female
  Weight: 62 kg

DRUGS (5)
  1. ERLOTINIB [Suspect]
     Active Substance: ERLOTINIB
     Indication: RENAL CANCER
     Dosage: UNK UNK, UNKNOWN FREQ.
     Route: 048
  2. ERLOTINIB [Suspect]
     Active Substance: ERLOTINIB
     Indication: BRAIN NEOPLASM MALIGNANT
  3. ERLOTINIB [Suspect]
     Active Substance: ERLOTINIB
     Indication: MALIGNANT NEOPLASM OF SPINAL CORD
  4. ERLOTINIB [Suspect]
     Active Substance: ERLOTINIB
     Indication: MALIGNANT RESPIRATORY TRACT NEOPLASM
  5. ERLOTINIB [Suspect]
     Active Substance: ERLOTINIB
     Indication: NON-SMALL CELL LUNG CANCER

REACTIONS (4)
  - Metastases to spine [Unknown]
  - Death [Fatal]
  - Loss of consciousness [Unknown]
  - Pain [Unknown]
